FAERS Safety Report 15946869 (Version 1)
Quarter: 2019Q1

REPORT INFORMATION
  Report Type: Spontaneous
  Country: US (occurrence: US)
  Receive Date: 20190211
  Receipt Date: 20190211
  Transmission Date: 20190417
  Serious: No
  Sender: FDA-Public Use
  Company Number: US-PERRIGO-18US012060

PATIENT
  Age: 93 Year
  Sex: Female
  Weight: 72.56 kg

DRUGS (1)
  1. ESTRADIOL. [Suspect]
     Active Substance: ESTRADIOL
     Indication: PRODUCT USED FOR UNKNOWN INDICATION
     Dosage: UNKNOWN, QD
     Route: 067
     Dates: start: 20180730, end: 20180803

REACTIONS (1)
  - Vaginal mucosal blistering [Recovered/Resolved]

NARRATIVE: CASE EVENT DATE: 20180730
